FAERS Safety Report 25367391 (Version 1)
Quarter: 2025Q2

REPORT INFORMATION
  Report Type: Spontaneous
  Country: GB (occurrence: GB)
  Receive Date: 20250528
  Receipt Date: 20250528
  Transmission Date: 20250716
  Serious: Yes (Other)
  Sender: Unknown Manufacturer
  Company Number: None

PATIENT
  Age: 285 Day
  Sex: Female
  Weight: 7 kg

DRUGS (1)
  1. AMOXICILLIN [Suspect]
     Active Substance: AMOXICILLIN
     Indication: Ear infection
     Dosage: 5ML 3XDAILY
     Dates: start: 20250508, end: 20250509

REACTIONS (4)
  - Mucous stools [Not Recovered/Not Resolved]
  - Discomfort [Recovered/Resolved]
  - Diarrhoea [Recovering/Resolving]
  - Rash erythematous [Recovered/Resolved]

NARRATIVE: CASE EVENT DATE: 20250508
